FAERS Safety Report 26208191 (Version 1)
Quarter: 2025Q4

REPORT INFORMATION
  Report Type: Report from Study
  Country: US (occurrence: US)
  Receive Date: 20251229
  Receipt Date: 20251229
  Transmission Date: 20260117
  Serious: Yes (Other)
  Sender: JOHNSON AND JOHNSON
  Company Number: US-JNJFOC-20251230714

PATIENT
  Age: 46 Year
  Sex: Male

DRUGS (15)
  1. SPRAVATO [Suspect]
     Active Substance: ESKETAMINE
     Indication: Product used for unknown indication
     Dosage: ^84 MG, 2 TOTAL DOSES^
     Route: 045
     Dates: start: 20251201, end: 20251208
  2. TRAZODONE [Concomitant]
     Active Substance: TRAZODONE HYDROCHLORIDE
     Indication: Product used for unknown indication
     Dosage: TAKE 50-100 MG BY MOUTH NIGHTLY
     Route: 048
  3. ALBUTEROL [Concomitant]
     Active Substance: ALBUTEROL
     Indication: Product used for unknown indication
     Dosage: INHALE 2 PUFFS BY MOUTH EVERY 6 HOURS AS NEEDED
  4. FLUTICASONE PROPIONATE [Concomitant]
     Active Substance: FLUTICASONE PROPIONATE
     Indication: Product used for unknown indication
     Dosage: -ACTUATION NASAL SPRAY - ADMINISTER 1 SPRAY INTO EACH NOSTRIL ONCE A DAY.?-500-50 MCG INHALER - INHALE 1 PUFF BY MOUTH 2 TIMES A DAY. RINSE MOUTH WITH WATER AFTER USE. DO NOT SWALLOW.
  5. OMEPRAZOLE [Concomitant]
     Active Substance: OMEPRAZOLE
     Indication: Product used for unknown indication
     Dosage: TAKE 1 CAPSULE (20 MG TOTAL) BY MOUTH EVERY OTHER NIGHT.
     Route: 048
  6. DOCUSATE SODIUM [Concomitant]
     Active Substance: DOCUSATE SODIUM
     Indication: Product used for unknown indication
     Dosage: TAKE 1 CAPSULE (100 MG TOTAL) BY MOUTH 2 TIMES A DAY.
     Route: 048
  7. NITROGLYCERIN [Concomitant]
     Active Substance: NITROGLYCERIN
     Indication: Product used for unknown indication
     Dosage: SL TABLET - PLACE 1 TABLET (0.4 MG TOTAL) UNDER THE TONGUE EVERY 5 MINUTES FOR UP TO 3?DOSES AS NEEDED FOR CHEST PAIN. IF NO RELIEF, DIAL 911.
     Route: 060
  8. CREON [Concomitant]
     Active Substance: PANCRELIPASE AMYLASE\PANCRELIPASE LIPASE\PANCRELIPASE PROTEASE
     Indication: Product used for unknown indication
     Dosage: 24,000-76,000 -120,000 UNIT CAPSULE - TAKE 2 CAPSULES (48,000 UNITS TOTAL) BY MOUTH 3 TIMES A DAY WITH MEALS. - DIGESTIVE ENZYME FOR PANCREAS
  9. AMLODIPINE [Concomitant]
     Active Substance: AMLODIPINE BESYLATE
     Indication: Product used for unknown indication
     Dosage: TAKE 1 TABLET (5 MG TOTAL) BY MOUTH ONCE A DAY. (AT NIGHT)
     Route: 048
  10. ASPIRIN [Concomitant]
     Active Substance: ASPIRIN
     Indication: Product used for unknown indication
     Dosage: EC TABLET - TAKE 81 MG BY MOUTH AT BED TIME.
     Route: 048
  11. NOVOLOG [Concomitant]
     Active Substance: INSULIN ASPART
     Indication: Type 2 diabetes mellitus
     Dosage: 100 INSULIN ASPART 100 UNIT/ML INJECTION - USE UP TO 200 UNITS PER DAY VIA INSULIN PUMP.
  12. TRAMADOL [Concomitant]
     Active Substance: TRAMADOL
     Indication: Pain
     Dosage: TAKE 1 TABLET (50 MG TOTAL) BY MOUTH EVERY 8 HOURS AS NEEDED FOR PAIN
     Route: 048
  13. FENOFIBRATE [Concomitant]
     Active Substance: FENOFIBRATE
     Indication: Product used for unknown indication
     Dosage: TAKE 1 TABLET (54 MG TOTAL) BY MOUTH ONCE A DAY. (AT NIGHT)
     Route: 048
  14. LORATADINE [Concomitant]
     Active Substance: LORATADINE
     Indication: Product used for unknown indication
     Dosage: TAKE 1 TABLET (10 MG TOTAL) BY MOUTH ONCE A DAY. (AT NIGHT)
     Route: 048
  15. BUSPIRONE [Concomitant]
     Active Substance: BUSPIRONE HYDROCHLORIDE
     Indication: Product used for unknown indication
     Dosage: TAKE 15 MG BY MOUTH 2 TIMES A DAY.
     Route: 048

REACTIONS (2)
  - Diverticulitis [Recovered/Resolved]
  - Influenza like illness [Recovered/Resolved]

NARRATIVE: CASE EVENT DATE: 20251201
